FAERS Safety Report 20993797 (Version 1)
Quarter: 2022Q2

REPORT INFORMATION
  Report Type: Spontaneous
  Country: JP (occurrence: JP)
  Receive Date: 20220622
  Receipt Date: 20220622
  Transmission Date: 20220721
  Serious: Yes (Other)
  Sender: FDA-Public Use
  Company Number: JP-UCBSA-2022035257

PATIENT

DRUGS (3)
  1. NEUPRO [Suspect]
     Active Substance: ROTIGOTINE
     Indication: Parkinson^s disease
     Dosage: 4MG STRENGTH
     Route: 062
     Dates: start: 201905, end: 20190530
  2. NEUPRO [Suspect]
     Active Substance: ROTIGOTINE
     Dosage: 2MG STRENGTH
     Route: 062
     Dates: start: 20190531, end: 20220606
  3. NEUPRO [Suspect]
     Active Substance: ROTIGOTINE
     Dosage: 1MG STRENGTH
     Route: 062
     Dates: start: 20220607

REACTIONS (8)
  - Dementia [Unknown]
  - Altered state of consciousness [Not Recovered/Not Resolved]
  - Depressed level of consciousness [Not Recovered/Not Resolved]
  - Weight decreased [Unknown]
  - Dyskinesia [Not Recovered/Not Resolved]
  - Tremor [Unknown]
  - Torticollis [Unknown]
  - Blood pressure decreased [Unknown]

NARRATIVE: CASE EVENT DATE: 20190501
